FAERS Safety Report 7227222-9 (Version None)
Quarter: 2011Q1

REPORT INFORMATION
  Report Type: 
  Country: None (occurrence: None)
  Receive Date: 20110114
  Receipt Date: 20110106
  Transmission Date: 20110831
  Serious: Yes (Hospitalization)
  Sender: FDA-Public Use
  Company Number: A0839293A

PATIENT
  Age: 67 Year
  Sex: Female
  Weight: 89 kg

DRUGS (5)
  1. PAZOPANIB [Suspect]
     Indication: SARCOMA
     Dosage: 800MG PER DAY
     Route: 048
     Dates: start: 20091211, end: 20100105
  2. COMPAZINE [Concomitant]
     Indication: NAUSEA
     Dosage: 10MG AS REQUIRED
     Route: 048
  3. LYRICA [Concomitant]
     Dosage: 50MG AS REQUIRED
     Route: 048
  4. NORVASC [Concomitant]
     Indication: HYPERTENSION
     Dosage: 5MG PER DAY
     Route: 048
     Dates: start: 20091223
  5. MICARDIS [Concomitant]
     Indication: HYPERTENSION
     Dosage: 80MG PER DAY
     Route: 048

REACTIONS (4)
  - DYSPNOEA [None]
  - PNEUMOTHORAX [None]
  - VOMITING [None]
  - PERFORMANCE STATUS DECREASED [None]
